FAERS Safety Report 9575155 (Version 1)
Quarter: 2013Q4

REPORT INFORMATION
  Report Type: Spontaneous
  Country: IT (occurrence: IT)
  Receive Date: 20131001
  Receipt Date: 20131001
  Transmission Date: 20140711
  Serious: Yes (Hospitalization)
  Sender: FDA-Public Use
  Company Number: PHHY2013IT108614

PATIENT
  Sex: Female

DRUGS (2)
  1. EPIRUBICIN [Suspect]
     Indication: LEIOMYOSARCOMA
     Dosage: 90 MG/M2, CYCLIC
     Route: 042
     Dates: start: 20130830, end: 20130901
  2. IFOSFAMIDE [Suspect]
     Indication: LEIOMYOSARCOMA
     Dosage: 3000 MG/M2, CYCLIC
     Route: 042
     Dates: start: 20130830, end: 20130901

REACTIONS (2)
  - Cystitis haemorrhagic [Recovered/Resolved]
  - Febrile neutropenia [Recovered/Resolved]
